FAERS Safety Report 15627141 (Version 4)
Quarter: 2019Q1

REPORT INFORMATION
  Report Type: Report from Study
  Country: CH (occurrence: CH)
  Receive Date: 20181116
  Receipt Date: 20190124
  Transmission Date: 20190417
  Serious: Yes (Hospitalization)
  Sender: FDA-Public Use
  Company Number: CH-AMGEN-CHENI2018160892

PATIENT
  Age: 76 Year
  Sex: Male
  Weight: 71.6 kg

DRUGS (19)
  1. MAGNESIOCARD [Concomitant]
     Active Substance: MAGNESIUM ASPARTATE HYDROCHLORIDE
     Dosage: 5 MMOL, QD
     Dates: end: 20181114
  2. STILNOX [Concomitant]
     Active Substance: ZOLPIDEM TARTRATE
     Dosage: 10 MG, AS NECESSARY
     Route: 048
     Dates: start: 20181113, end: 20181117
  3. QUANTALAN [Concomitant]
     Active Substance: CHOLESTYRAMINE
     Dosage: 4 MG, BID
     Route: 048
     Dates: start: 20181112, end: 20181115
  4. PADMED CIRCOSAN [Concomitant]
     Active Substance: CALCIUM SULFATE\HERBALS
     Dosage: 2-1-0-0
     Route: 048
     Dates: start: 201808, end: 20181109
  5. CLEXANE [Concomitant]
     Active Substance: ENOXAPARIN SODIUM
     Dosage: 40 MG, QD
     Route: 058
     Dates: start: 20181113, end: 20181113
  6. RESYL PLUS [Concomitant]
     Active Substance: CODEINE PHOSPHATE\GUAIFENESIN
     Dosage: UNK UNK, AS NECESSARY
     Route: 048
     Dates: start: 20181115, end: 20181116
  7. XARELTO [Concomitant]
     Active Substance: RIVAROXABAN
     Dosage: 20 MG, QD
     Route: 048
     Dates: start: 20160208
  8. EVOLOCUMAB [Suspect]
     Active Substance: EVOLOCUMAB
     Indication: HYPERCHOLESTEROLAEMIA
     Dosage: 140 MG, Q2WK
     Route: 058
     Dates: start: 2013, end: 20160913
  9. BECOZYME C FORTE [Concomitant]
     Dosage: UNK UNK, QD
     Route: 048
     Dates: start: 2017, end: 20181112
  10. MOVICOL [Concomitant]
     Active Substance: POLYETHYLENE GLYCOL 3350\POTASSIUM CHLORIDE\SODIUM BICARBONATE\SODIUM CHLORIDE
     Dosage: UNK UNK, AS NECESSARY
     Route: 048
     Dates: start: 20181112, end: 20181112
  11. PANTOZOL [Concomitant]
     Active Substance: PANTOPRAZOLE SODIUM
     Dosage: 40 MG, QD
     Route: 048
     Dates: start: 2011, end: 20181111
  12. RIOPAN [Concomitant]
     Dosage: 80 MG, AS NECESSARY
     Route: 048
     Dates: start: 20181114, end: 20181114
  13. METO ZEROK [Concomitant]
     Active Substance: METOPROLOL SUCCINATE
     Dosage: 25 MG, TID
     Route: 048
  14. VITAMINS NOS [Concomitant]
     Active Substance: VITAMINS
     Dosage: 5 MG, QD
     Route: 048
     Dates: start: 2017, end: 20181111
  15. EVOLOCUMAB [Suspect]
     Active Substance: EVOLOCUMAB
     Dosage: 140 MG, Q2WK
     Route: 058
     Dates: start: 20180503
  16. ATORVASTATIN [Concomitant]
     Active Substance: ATORVASTATIN
     Dosage: 40 MG, QD
     Route: 048
     Dates: end: 20181110
  17. CRESTOR [Concomitant]
     Active Substance: ROSUVASTATIN CALCIUM
     Dosage: 5 MG, UNK
     Route: 048
     Dates: start: 20181116
  18. SERTALIN [Concomitant]
     Dosage: 50 MG, QD
     Route: 048
     Dates: start: 20180604, end: 20181111
  19. DAFALGAN [Concomitant]
     Active Substance: ACETAMINOPHEN
     Dosage: 500 MG, AS NECESSARY
     Route: 048
     Dates: start: 20181110, end: 20181114

REACTIONS (3)
  - Diarrhoea [Recovered/Resolved]
  - Hyperbilirubinaemia [Recovered/Resolved]
  - Abdominal pain upper [Recovered/Resolved]

NARRATIVE: CASE EVENT DATE: 20181020
